FAERS Safety Report 7450896-4 (Version None)
Quarter: 2011Q2

REPORT INFORMATION
  Report Type: 
  Country: None (occurrence: None)
  Receive Date: 20110502
  Receipt Date: 20110422
  Transmission Date: 20111010
  Serious: Yes (Death, Hospitalization, Other)
  Sender: FDA-Public Use
  Company Number: US-CELGENEUS-163-21880-11043065

PATIENT
  Age: 61 Year
  Sex: Female

DRUGS (10)
  1. FUROSEMIDE [Concomitant]
     Route: 065
  2. OXYBUTYNIN [Concomitant]
     Route: 065
  3. WHOLE BLOOD [Concomitant]
     Route: 051
     Dates: start: 20100726
  4. REVLIMID [Suspect]
     Dosage: 5 MILLIGRAM
     Route: 048
     Dates: start: 20100801
  5. SCOPOLAMINE [Concomitant]
     Route: 065
  6. REVLIMID [Suspect]
     Dosage: 5 MILLIGRAM
     Route: 048
     Dates: start: 20100701, end: 20100901
  7. WHOLE BLOOD [Concomitant]
     Route: 051
     Dates: start: 20100802
  8. MORPHINE [Concomitant]
     Route: 065
  9. FAMOTIDINE [Concomitant]
     Route: 065
  10. APAP TAB [Concomitant]
     Route: 065

REACTIONS (7)
  - PLATELET COUNT DECREASED [None]
  - FATIGUE [None]
  - HAEMOGLOBIN DECREASED [None]
  - DIARRHOEA [None]
  - MYELODYSPLASTIC SYNDROME [None]
  - DEATH [None]
  - MUSCLE SPASMS [None]
